FAERS Safety Report 18917405 (Version 2)
Quarter: 2021Q1

REPORT INFORMATION
  Report Type: Report from Study
  Country: None (occurrence: TR)
  Receive Date: 20210219
  Receipt Date: 20210304
  Transmission Date: 20210420
  Serious: Yes (Other)
  Sender: FDA-Public Use
  Company Number: TR-ABBVIE-21K-161-3777269-00

PATIENT
  Age: 47 Year
  Sex: Female
  Weight: 82 kg

DRUGS (6)
  1. PEXOLA ER [Suspect]
     Active Substance: PRAMIPEXOLE DIHYDROCHLORIDE
     Indication: PARKINSON^S DISEASE
     Route: 048
     Dates: start: 2015, end: 20210219
  2. PK MERZ [Concomitant]
     Active Substance: AMANTADINE SULFATE
     Indication: PARKINSON^S DISEASE
     Route: 048
     Dates: start: 2021
  3. PEXA XR [Concomitant]
     Indication: PARKINSON^S DISEASE
     Route: 048
     Dates: start: 20210219
  4. DUODOPA [Suspect]
     Active Substance: CARBIDOPA\LEVODOPA
  5. MADOPAR HBS [Concomitant]
     Active Substance: BENSERAZIDE HYDROCHLORIDE\LEVODOPA
     Indication: PARKINSON^S DISEASE
     Route: 048
     Dates: start: 2012
  6. DUODOPA [Suspect]
     Active Substance: CARBIDOPA\LEVODOPA
     Indication: PARKINSON^S DISEASE
     Dosage: MORNING DOSE (ML): 6.30 CONTINIOUS DOSE (ML): 1.50 EXTRA DOSE (ML): 1.00
     Route: 050
     Dates: start: 20210216

REACTIONS (1)
  - Bradycardia [Recovered/Resolved]

NARRATIVE: CASE EVENT DATE: 20210215
